FAERS Safety Report 9834265 (Version 2)
Quarter: 2014Q1

REPORT INFORMATION
  Report Type: Spontaneous
  Country: GR (occurrence: GR)
  Receive Date: 20140122
  Receipt Date: 20140218
  Transmission Date: 20141002
  Serious: Yes (Other)
  Sender: FDA-Public Use
  Company Number: GR-JNJFOC-20140109061

PATIENT
  Age: 49 Year
  Sex: Male
  Weight: 80 kg

DRUGS (5)
  1. REMICADE [Suspect]
     Indication: CROHN^S DISEASE
     Dosage: 100MG VIAL
     Route: 042
     Dates: start: 20131101, end: 20131228
  2. REMICADE [Suspect]
     Indication: ANKYLOSING SPONDYLITIS
     Dosage: 100MG VIAL
     Route: 042
     Dates: start: 20131101, end: 20131228
  3. RIFINAH [Suspect]
     Indication: PULMONARY TUBERCULOSIS
     Route: 065
     Dates: start: 20140113, end: 20140127
  4. PREZOLON [Concomitant]
     Route: 065
  5. METHYLPREDNISOLONE [Concomitant]
     Indication: CROHN^S DISEASE
     Dosage: REDUCING BY 5 MG EVERY 2 WEEKS
     Route: 065
     Dates: start: 20131024, end: 20131220

REACTIONS (2)
  - Pulmonary tuberculosis [Not Recovered/Not Resolved]
  - Transaminases increased [Unknown]
